FAERS Safety Report 15719355 (Version 2)
Quarter: 2019Q1

REPORT INFORMATION
  Report Type: Spontaneous
  Country: US (occurrence: US)
  Receive Date: 20181213
  Receipt Date: 20190117
  Transmission Date: 20190417
  Serious: No
  Sender: FDA-Public Use
  Company Number: US-ASTRAZENECA-2018SF56084

PATIENT
  Sex: Male

DRUGS (1)
  1. PULMICORT FLEXHALER [Suspect]
     Active Substance: BUDESONIDE
     Dosage: 90 MCG, 2 INHALATIONS TWICE A DAY
     Route: 055
     Dates: start: 20181015

REACTIONS (4)
  - Asthma [Unknown]
  - Product quality issue [Unknown]
  - Intentional product misuse [Unknown]
  - Product dose omission [Unknown]
